FAERS Safety Report 7401214-9 (Version None)
Quarter: 2011Q2

REPORT INFORMATION
  Report Type: 
  Country: None (occurrence: None)
  Receive Date: 20110407
  Receipt Date: 20110331
  Transmission Date: 20111010
  Serious: Yes (Hospitalization)
  Sender: FDA-Public Use
  Company Number: BR-ELI_LILLY_AND_COMPANY-BR201009008071

PATIENT
  Sex: Female
  Weight: 55 kg

DRUGS (10)
  1. DIMORF [Concomitant]
     Dates: start: 20100304
  2. OMEPRAZOLE [Concomitant]
     Dates: start: 20100330
  3. PROPRANOLOL [Concomitant]
     Dates: start: 20100427, end: 20100427
  4. CARBAMAZEPINE [Concomitant]
     Dates: start: 20100308, end: 20100703
  5. DIAZEPAM [Concomitant]
     Dates: start: 20100622
  6. GEMCITABINE HYDROCHLORIDE [Suspect]
     Indication: BREAST CANCER METASTATIC
     Dosage: 1000 MG/M2, OTHER
     Route: 042
     Dates: start: 20100330
  7. AMITRIPTILINA [Concomitant]
     Dates: start: 20100308
  8. VITAMIN B [Concomitant]
     Dates: start: 20100720
  9. PACLITAXEL [Suspect]
     Indication: BREAST CANCER METASTATIC
     Dosage: 175 MG/M2, OTHER
     Route: 042
     Dates: start: 20100330, end: 20100826
  10. FERROUS SULFATE TAB [Concomitant]
     Dates: start: 20100608

REACTIONS (1)
  - PNEUMONIA [None]
